FAERS Safety Report 7703240-9 (Version None)
Quarter: 2011Q3

REPORT INFORMATION
  Report Type: 
  Country: None (occurrence: None)
  Receive Date: 20110817
  Receipt Date: 20110720
  Transmission Date: 20111222
  Serious: Yes (Hospitalization, Other)
  Sender: FDA-Public Use
  Company Number: 2011SP038137

PATIENT
  Age: 61 Year
  Sex: Female

DRUGS (2)
  1. TEMOZOLOMIDE [Suspect]
     Indication: NEOPLASM RECURRENCE
     Dates: start: 20071109, end: 20071113
  2. TEMOZOLOMIDE [Suspect]
     Indication: MALIGNANT GLIOMA
     Dates: start: 20071109, end: 20071113

REACTIONS (3)
  - HAEMORRHOIDS [None]
  - LOSS OF CONSCIOUSNESS [None]
  - CONVULSION [None]
